FAERS Safety Report 11409409 (Version 1)
Quarter: 2015Q3

REPORT INFORMATION
  Report Type: Spontaneous
  Country: US (occurrence: None)
  Receive Date: 20150820
  Receipt Date: 20150820
  Transmission Date: 20151125
  Serious: Yes (Other)
  Sender: FDA-Public Use
  Company Number: None

PATIENT
  Age: 76 Year
  Sex: Male
  Weight: 70.76 kg

DRUGS (8)
  1. THYROID MEDS [Concomitant]
  2. ELIQUIS [Suspect]
     Active Substance: APIXABAN
     Indication: RENAL FAILURE
     Route: 048
     Dates: start: 20150810, end: 20150817
  3. RENTIDENTIDIN [Concomitant]
  4. PORT FOR CHEMO [Concomitant]
  5. APPLAUDING [Concomitant]
  6. PM [Concomitant]
  7. ELIQUIS [Suspect]
     Active Substance: APIXABAN
     Indication: THROMBOSIS
     Route: 048
     Dates: start: 20150810, end: 20150817
  8. ELIQUIS [Suspect]
     Active Substance: APIXABAN
     Indication: PULMONARY THROMBOSIS
     Route: 048
     Dates: start: 20150810, end: 20150817

REACTIONS (4)
  - Rash [None]
  - Urticaria [None]
  - Discomfort [None]
  - Pruritus [None]

NARRATIVE: CASE EVENT DATE: 20150814
